FAERS Safety Report 7163289-4 (Version None)
Quarter: 2010Q4

REPORT INFORMATION
  Report Type: 
  Country: None (occurrence: None)
  Receive Date: 20101215
  Receipt Date: 20100322
  Transmission Date: 20110411
  Serious: Yes (Other)
  Sender: FDA-Public Use
  Company Number: NO-PFIZER INC-2010029154

PATIENT
  Age: 56 Year
  Sex: Male

DRUGS (6)
  1. LYRICA [Suspect]
     Indication: NEURALGIA
     Dosage: UNK
     Dates: start: 20091214
  2. LYRICA [Suspect]
     Indication: GENERALISED ANXIETY DISORDER
     Dosage: 450 MG DAILY
     Dates: end: 20100218
  3. LYRICA [Suspect]
     Indication: DEPRESSION
  4. EFFEXOR [Concomitant]
     Dosage: 175 MG, 1X/DAY
  5. ZYPREXA [Concomitant]
     Dosage: 2.5 MG, 1X/DAY
  6. AERIUS [Concomitant]
     Indication: ASTHMA
     Dosage: 1 TABLET DAILY

REACTIONS (1)
  - HYPOMANIA [None]
